FAERS Safety Report 14111537 (Version 4)
Quarter: 2018Q1

REPORT INFORMATION
  Report Type: Spontaneous
  Country: US (occurrence: US)
  Receive Date: 20171020
  Receipt Date: 20180129
  Transmission Date: 20180508
  Serious: Yes (Death, Hospitalization, Other)
  Sender: FDA-Public Use
  Company Number: US-AMGEN-USASP2017157129

PATIENT
  Age: 40 Year
  Sex: Female

DRUGS (13)
  1. BLINATUMOMAB [Suspect]
     Active Substance: BLINATUMOMAB
     Indication: ACUTE LYMPHOCYTIC LEUKAEMIA REFRACTORY
     Dosage: UNK
     Route: 065
     Dates: start: 20170214, end: 20170222
  2. CYCLOPHOSPHAMIDE. [Concomitant]
     Active Substance: CYCLOPHOSPHAMIDE
  3. HYDROCHLOROTHIAZIDE. [Concomitant]
     Active Substance: HYDROCHLOROTHIAZIDE
     Indication: HYPERTENSION
     Dosage: UNK
     Dates: end: 201704
  4. METOPROLOL. [Concomitant]
     Active Substance: METOPROLOL
     Indication: HYPERTENSION
  5. VINCRISTINE [Concomitant]
     Active Substance: VINCRISTINE
  6. CRESTOR [Concomitant]
     Active Substance: ROSUVASTATIN CALCIUM
     Indication: HYPERTRIGLYCERIDAEMIA
     Dosage: UNK
     Dates: end: 201704
  7. METHOTREXATE. [Concomitant]
     Active Substance: METHOTREXATE
  8. INSULIN [Concomitant]
     Active Substance: INSULIN NOS
     Indication: DIABETES MELLITUS
     Dosage: UNK
     Dates: end: 201704
  9. INSULIN [Concomitant]
     Active Substance: INSULIN NOS
     Indication: HYPERTRIGLYCERIDAEMIA
  10. BLINATUMOMAB [Suspect]
     Active Substance: BLINATUMOMAB
     Indication: B-CELL TYPE ACUTE LEUKAEMIA
  11. PEGASPARGASE [Concomitant]
     Active Substance: PEGASPARGASE
  12. ADRIAMYCIN [Concomitant]
     Active Substance: DOXORUBICIN HYDROCHLORIDE
  13. DEXAMETHASONE. [Concomitant]
     Active Substance: DEXAMETHASONE

REACTIONS (14)
  - Acute myeloid leukaemia [Fatal]
  - Hyperkalaemia [Unknown]
  - Blood fibrinogen decreased [Unknown]
  - Appendicitis [Unknown]
  - Bacterial sepsis [Unknown]
  - Nausea [Unknown]
  - Hyperphosphataemia [Unknown]
  - Pneumonia fungal [Unknown]
  - Depressed mood [Unknown]
  - Urinary incontinence [Unknown]
  - Anal incontinence [Unknown]
  - Confusional state [Unknown]
  - Conjunctival haemorrhage [Unknown]
  - International normalised ratio increased [Unknown]

NARRATIVE: CASE EVENT DATE: 201702
